FAERS Safety Report 5035299-4 (Version None)
Quarter: 2006Q2

REPORT INFORMATION
  Report Type: 
  Country: None (occurrence: None)
  Receive Date: 20060523
  Receipt Date: 20050513
  Transmission Date: 20061013
  Serious: Yes (Life-Threatening, Other)
  Sender: FDA-Public Use
  Company Number: 20050500121

PATIENT
  Sex: Female

DRUGS (7)
  1. HEPARIN SODIUM [Suspect]
     Dosage: 60 UNITS;EVERY DAY
     Dates: start: 20041201, end: 20041201
  2. INTEGRILIN [Suspect]
     Dosage: SEE IMAGE
     Route: 042
     Dates: start: 20041201, end: 20041201
  3. INTEGRILIN [Suspect]
     Dosage: SEE IMAGE
     Route: 042
     Dates: start: 20041201, end: 20041201
  4. INTEGRILIN [Suspect]
     Dosage: SEE IMAGE
     Route: 042
     Dates: start: 20041201
  5. PLAVIX [Suspect]
     Dosage: 75 MG;EVERY DAY
     Dates: start: 20050101, end: 20050101
  6. LOVENOX [Suspect]
     Indication: ACUTE MYOCARDIAL INFARCTION
     Dosage: 1 MGKG;Q12HR;SC
     Route: 058
     Dates: start: 20050101, end: 20050101
  7. ASPIRIN [Suspect]
     Dates: start: 20050101, end: 20050101

REACTIONS (3)
  - HAEMORRHAGE INTRACRANIAL [None]
  - MYOCARDIAL INFARCTION [None]
  - VOMITING [None]
